FAERS Safety Report 17411647 (Version 1)
Quarter: 2020Q1

REPORT INFORMATION
  Report Type: Spontaneous
  Country: CA (occurrence: CA)
  Receive Date: 20200213
  Receipt Date: 20200213
  Transmission Date: 20200409
  Serious: Yes (Death, Hospitalization, Other)
  Sender: FDA-Public Use
  Company Number: CA-AMGEN-CANSP2020022193

PATIENT
  Age: 71 Year
  Sex: Male

DRUGS (6)
  1. CINACALCET HCL [Suspect]
     Active Substance: CINACALCET HYDROCHLORIDE
     Dosage: 120 MILLIGRAM, QD
     Route: 065
  2. PAMIDRONATE [Concomitant]
     Active Substance: PAMIDRONATE DISODIUM
     Indication: HYPERCALCAEMIA
     Dosage: UNK
  3. CINACALCET HCL [Suspect]
     Active Substance: CINACALCET HYDROCHLORIDE
     Dosage: 60 MILLIGRAM, QD
     Route: 065
  4. CINACALCET HCL [Suspect]
     Active Substance: CINACALCET HYDROCHLORIDE
     Indication: HYPERPARATHYROIDISM
     Dosage: UNK
     Route: 065
  5. XGEVA [Suspect]
     Active Substance: DENOSUMAB
     Indication: HYPERCALCAEMIA
     Dosage: 120 MILLIGRAM
     Route: 058
     Dates: start: 201805, end: 201805
  6. CINACALCET HCL [Suspect]
     Active Substance: CINACALCET HYDROCHLORIDE
     Dosage: 30 MILLIGRAM, QD
     Route: 065
     Dates: start: 2018

REACTIONS (10)
  - Anuria [Unknown]
  - Off label use [Unknown]
  - Mobility decreased [Unknown]
  - Infection [Fatal]
  - Acute myocardial infarction [Unknown]
  - Hypoalbuminaemia [Unknown]
  - Hypercalcaemia [Recovered/Resolved]
  - Hypocalcaemia [Unknown]
  - Drug ineffective for unapproved indication [Unknown]
  - Gastrointestinal disorder [Unknown]

NARRATIVE: CASE EVENT DATE: 2018
